FAERS Safety Report 6932714-3 (Version None)
Quarter: 2010Q3

REPORT INFORMATION
  Report Type: 
  Country: None (occurrence: None)
  Receive Date: 20100813
  Receipt Date: 20100625
  Transmission Date: 20110219
  Serious: No
  Sender: FDA-Public Use
  Company Number: 1000014755

PATIENT
  Age: 57 Year
  Sex: Male

DRUGS (9)
  1. SAVELLA [Suspect]
     Indication: FIBROMYALGIA
     Dosage: SEE IMAGE
     Route: 048
     Dates: start: 20100525, end: 20100525
  2. SAVELLA [Suspect]
     Indication: FIBROMYALGIA
     Dosage: SEE IMAGE
     Route: 048
     Dates: start: 20100526, end: 20100527
  3. SAVELLA [Suspect]
     Indication: FIBROMYALGIA
     Dosage: SEE IMAGE
     Route: 048
     Dates: start: 20100528, end: 20100531
  4. SAVELLA [Suspect]
     Indication: FIBROMYALGIA
     Dosage: SEE IMAGE
     Route: 048
     Dates: start: 20100601
  5. TRAZODONE (50 MILLIGRAM, TABLETS) [Concomitant]
  6. ZOLOFT [Concomitant]
  7. FISH OIL [Concomitant]
  8. SUPPLEMENTS [Concomitant]
  9. VITAMINS [Concomitant]

REACTIONS (1)
  - VISUAL IMPAIRMENT [None]
